FAERS Safety Report 4630940-X (Version None)
Quarter: 2005Q2

REPORT INFORMATION
  Report Type: 
  Country: None (occurrence: None)
  Receive Date: 20050407
  Receipt Date: 20050407
  Transmission Date: 20051028
  Serious: Yes (Hospitalization)
  Sender: FDA-Public Use
  Company Number: None

PATIENT
  Age: 82 Year
  Sex: Male
  Weight: 119.8 kg

DRUGS (1)
  1. GLYBURIDE [Suspect]
     Indication: DIABETES MELLITUS
     Dosage: 10MG, 10MG QD, ORAL
     Route: 048
     Dates: start: 20041105, end: 20050210

REACTIONS (1)
  - HYPOGLYCAEMIA [None]
